FAERS Safety Report 6106947-2 (Version None)
Quarter: 2009Q1

REPORT INFORMATION
  Report Type: 
  Country: None (occurrence: None)
  Receive Date: 20090305
  Receipt Date: 20090305
  Transmission Date: 20090719
  Serious: Yes (Disabling)
  Sender: FDA-Public Use
  Company Number: None

PATIENT
  Age: 44 Year
  Sex: Female
  Weight: 57.6068 kg

DRUGS (2)
  1. ZICAM COLD REMEDY NASAL GEL, MATRIXX [Suspect]
     Indication: NASOPHARYNGITIS
     Dosage: 1 SPRAY 1 TIME NASAL
     Route: 045
     Dates: start: 20090116, end: 20090117
  2. ZICAM COLD REMEDY NASAL GEL, MATRIXX [Suspect]
     Indication: PROPHYLAXIS
     Dosage: 1 SPRAY 1 TIME NASAL
     Route: 045
     Dates: start: 20090116, end: 20090117

REACTIONS (5)
  - ANOSMIA [None]
  - BURNING SENSATION [None]
  - DRUG INEFFECTIVE [None]
  - HYPOGEUSIA [None]
  - PAIN [None]
